FAERS Safety Report 19065822 (Version 1)
Quarter: 2021Q1

REPORT INFORMATION
  Report Type: Spontaneous
  Country: US (occurrence: US)
  Receive Date: 20210327
  Receipt Date: 20210327
  Transmission Date: 20210420
  Serious: No
  Sender: FDA-Public Use
  Company Number: US-009507513-2103USA005833

PATIENT
  Age: 54 Year
  Sex: Male

DRUGS (2)
  1. PIFELTRO [Suspect]
     Active Substance: DORAVIRINE
     Indication: HIV INFECTION
     Dosage: 100 MILLIGRAM
     Route: 048
  2. INTELENCE [Suspect]
     Active Substance: ETRAVIRINE
     Dosage: UNK

REACTIONS (1)
  - Nightmare [Unknown]
